FAERS Safety Report 8238399-0 (Version None)
Quarter: 2012Q1

REPORT INFORMATION
  Report Type: 
  Country: None (occurrence: None)
  Receive Date: 20120327
  Receipt Date: 20120316
  Transmission Date: 20120608
  Serious: Yes (Other)
  Sender: FDA-Public Use
  Company Number: DE-ALLERGAN-1202467US

PATIENT

DRUGS (1)
  1. OZURDEX [Suspect]
     Indication: RETINAL VEIN OCCLUSION
     Dosage: 0.7 MG, SINGLE
     Route: 031
     Dates: start: 20120101, end: 20120101

REACTIONS (3)
  - DEVICE DISLOCATION [None]
  - VITREOUS HAEMORRHAGE [None]
  - COMPLICATION OF DEVICE INSERTION [None]
